FAERS Safety Report 6518122-8 (Version None)
Quarter: 2009Q4

REPORT INFORMATION
  Report Type: 
  Country: None (occurrence: None)
  Receive Date: 20091218
  Receipt Date: 20091204
  Transmission Date: 20100525
  Serious: Yes (Other)
  Sender: FDA-Public Use
  Company Number: 1000010780

PATIENT

DRUGS (1)
  1. ESCITALOPRAM OXALATE [Suspect]
     Indication: DRUG EXPOSURE VIA BREAST MILK
     Dosage: (10 MG), TRANSMAMMARY
     Route: 063
     Dates: start: 20091201

REACTIONS (2)
  - AGITATION NEONATAL [None]
  - DRUG EXPOSURE VIA BREAST MILK [None]
